FAERS Safety Report 4290530-8 (Version None)
Quarter: 2004Q1

REPORT INFORMATION
  Report Type: 
  Country: None (occurrence: None)
  Receive Date: 20040126
  Receipt Date: 20030923
  Transmission Date: 20041129
  Serious: No
  Sender: FDA-Public Use
  Company Number: USA030948075

PATIENT
  Age: 57 Year
  Sex: Female
  Weight: 67 kg

DRUGS (30)
  1. FORTEO [Suspect]
     Indication: OSTEOPOROSIS
  2. COUMADIN [Concomitant]
  3. NEXIUM [Concomitant]
  4. MS CONTN (MORPHINE SULFATE) [Concomitant]
  5. FIORICET [Concomitant]
  6. VITAMIN B6 [Concomitant]
  7. ACTONEL (RISENDRONATE SODIUM) [Concomitant]
  8. MIACALCIN [Concomitant]
  9. CALCIUM [Concomitant]
  10. PEPCID [Concomitant]
  11. VITAMIN C [Concomitant]
  12. VITAMIN E [Concomitant]
  13. KLONOPIN (CLOPNAZDEPAM) [Concomitant]
  14. COMBIVENT [Concomitant]
  15. NEURONTIN [Concomitant]
  16. BENADRYL [Concomitant]
  17. FOLIC ACID [Concomitant]
  18. PROLASTIN (ALPHA-2-ANTITRYPSIN) [Concomitant]
  19. COLACE (DOCUSATE SODIUM) [Concomitant]
  20. POTASSIUM [Concomitant]
  21. HEPARIN [Concomitant]
  22. MORPHINE SULFATE [Concomitant]
  23. VITAMIN B-12 [Concomitant]
  24. COMPAZINE [Concomitant]
  25. MODURETIC 5-50 [Concomitant]
  26. CALCIUM CITRATE [Concomitant]
  27. MULTI-VITAMINS [Concomitant]
  28. CALCIUM CARBONATE WITH MAGNESIUM [Concomitant]
  29. ZINC SULFATE [Concomitant]
  30. VITAMIN B COMPLEX CAP [Concomitant]

REACTIONS (1)
  - MIGRAINE [None]
